FAERS Safety Report 24432762 (Version 1)
Quarter: 2024Q4

REPORT INFORMATION
  Report Type: Spontaneous
  Country: CN (occurrence: CN)
  Receive Date: 20241014
  Receipt Date: 20241014
  Transmission Date: 20250114
  Serious: Yes (Hospitalization)
  Sender: BAYER HEALTHCARE LLC
  Company Number: CN-BAYER-2024A145352

PATIENT
  Age: 72 Year
  Sex: Male
  Weight: 51 kg

DRUGS (2)
  1. LORATADINE [Suspect]
     Active Substance: LORATADINE
     Indication: Urticaria
     Dosage: 1 DF, QD
     Route: 048
     Dates: start: 20241011, end: 20241011
  2. EBASTINE [Suspect]
     Active Substance: EBASTINE
     Indication: Urticaria
     Dosage: 1 DF, QD
     Route: 048
     Dates: start: 20241011, end: 20241011

REACTIONS (3)
  - Anaemia [Recovering/Resolving]
  - Asthenia [Recovering/Resolving]
  - Dizziness [Recovering/Resolving]

NARRATIVE: CASE EVENT DATE: 20241011
